FAERS Safety Report 11459577 (Version 1)
Quarter: 2015Q3

REPORT INFORMATION
  Report Type: Spontaneous
  Country: US (occurrence: US)
  Receive Date: 20150904
  Receipt Date: 20150904
  Transmission Date: 20151125
  Serious: No
  Sender: FDA-Public Use
  Company Number: US-TARO-2015TAR00670

PATIENT
  Age: 26 Year
  Sex: Female

DRUGS (4)
  1. IRON [Concomitant]
     Active Substance: IRON
     Dosage: UNK
     Route: 048
     Dates: start: 201504
  2. WARFARIN SODIUM TABLETS USP 2MG [Suspect]
     Active Substance: WARFARIN SODIUM
     Dosage: 4 MG ON ALL OTHER DAYS
     Route: 048
     Dates: start: 201504
  3. VITAMIN C [Concomitant]
     Active Substance: ASCORBIC ACID
     Dosage: 500 MG, 1X/DAY
     Route: 048
     Dates: start: 201504
  4. WARFARIN SODIUM TABLETS USP 2MG [Suspect]
     Active Substance: WARFARIN SODIUM
     Indication: PULMONARY EMBOLISM
     Dosage: 2 MG ON SUNDAYS, WEDNESDAYS AND FRIDAYS
     Route: 048
     Dates: start: 201504

REACTIONS (1)
  - Diarrhoea [Not Recovered/Not Resolved]

NARRATIVE: CASE EVENT DATE: 201504
